FAERS Safety Report 10244561 (Version 1)
Quarter: 2014Q2

REPORT INFORMATION
  Report Type: Spontaneous
  Country: US (occurrence: US)
  Receive Date: 20140618
  Receipt Date: 20140618
  Transmission Date: 20141212
  Serious: No
  Sender: FDA-Public Use
  Company Number: US-BAYER-2014-090572

PATIENT
  Age: 81 Year
  Sex: Female

DRUGS (1)
  1. ESTRADIOL HEMIHYDRATE (PATCH) [Suspect]
     Indication: HOT FLUSH
     Dosage: UNK
     Route: 062
     Dates: start: 201312

REACTIONS (8)
  - Incorrect drug administration duration [None]
  - Product adhesion issue [None]
  - Irritability [Not Recovered/Not Resolved]
  - Night sweats [Not Recovered/Not Resolved]
  - Product quality issue [None]
  - Medication error [None]
  - Middle insomnia [Not Recovered/Not Resolved]
  - Drug ineffective [None]
